FAERS Safety Report 7247344-6 (Version None)
Quarter: 2011Q1

REPORT INFORMATION
  Report Type: 
  Country: None (occurrence: None)
  Receive Date: 20110127
  Receipt Date: 20110120
  Transmission Date: 20110831
  Serious: Yes (Other)
  Sender: FDA-Public Use
  Company Number: US-PFIZER INC-2011014921

PATIENT
  Sex: Male

DRUGS (4)
  1. DEPAKOTE [Concomitant]
     Indication: CONVULSION
     Dosage: 1500 MG, UNK
  2. PROPOFOL [Concomitant]
     Dosage: UNK
  3. NEURONTIN [Suspect]
     Indication: GRAND MAL CONVULSION
     Dosage: 300 MG, 3X/DAY
     Dates: end: 20110101
  4. FENTANYL [Concomitant]
     Dosage: UNK

REACTIONS (2)
  - CONVULSION [None]
  - AORTIC ANEURYSM [None]
